FAERS Safety Report 7943936-7 (Version None)
Quarter: 2011Q4

REPORT INFORMATION
  Report Type: 
  Country: None (occurrence: None)
  Receive Date: 20111128
  Receipt Date: 20111121
  Transmission Date: 20120403
  Serious: Yes (Hospitalization)
  Sender: FDA-Public Use
  Company Number: IE-AMGEN-IRLSP2011052150

PATIENT
  Age: 67 Year
  Sex: Female

DRUGS (7)
  1. PANTOPRAZOLE [Concomitant]
  2. ASPIRIN [Concomitant]
  3. CETIRIZINE HCL [Concomitant]
  4. EZETIMIBE/SIMVASTATIN [Concomitant]
  5. AMLODIPINE BESYLATE [Concomitant]
  6. ARANESP [Suspect]
     Indication: RENAL FAILURE CHRONIC
     Dosage: 40 MUG, 2 TIMES/WK
     Route: 058
     Dates: start: 20111006
  7. SENNA                              /00142201/ [Concomitant]

REACTIONS (3)
  - HEADACHE [None]
  - FALL [None]
  - DIALYSIS [None]
